FAERS Safety Report 24590122 (Version 1)
Quarter: 2024Q4

REPORT INFORMATION
  Report Type: Spontaneous
  Country: RU (occurrence: RU)
  Receive Date: 20241107
  Receipt Date: 20241107
  Transmission Date: 20250115
  Serious: Yes (Life-Threatening)
  Sender: SANDOZ
  Company Number: RU-002147023-NVSC2020RU212968

PATIENT
  Age: 65 Year
  Sex: Female
  Weight: 68.1 kg

DRUGS (18)
  1. AMOXICILLIN\CLAVULANATE POTASSIUM [Suspect]
     Active Substance: AMOXICILLIN\CLAVULANATE POTASSIUM
     Indication: Respiratory tract infection
     Dosage: UNK
     Route: 065
     Dates: start: 20200727, end: 20200729
  2. CARBOPLATIN [Suspect]
     Active Substance: CARBOPLATIN
     Indication: Non-small cell lung cancer
     Dosage: 534.5 MG
     Route: 042
     Dates: start: 20191216
  3. CIPROFLOXACIN [Suspect]
     Active Substance: CIPROFLOXACIN
     Indication: Product used for unknown indication
     Dosage: UNK
     Route: 065
     Dates: start: 20200727, end: 20200729
  4. PEMBROLIZUMAB [Suspect]
     Active Substance: PEMBROLIZUMAB
     Indication: Non-small cell lung cancer
     Dosage: 200 MG, Q3W
     Route: 042
     Dates: start: 20191216
  5. PEMETREXED [Suspect]
     Active Substance: PEMETREXED
     Indication: Non-small cell lung cancer
     Dosage: 850 MG
     Route: 042
     Dates: start: 20191216
  6. VITAMIN B12 [Concomitant]
     Active Substance: CYANOCOBALAMIN
     Indication: General physical condition
     Dosage: UNK
     Route: 065
     Dates: start: 20191214
  7. CHOLISAL [Concomitant]
     Indication: Stomatitis
     Dosage: UNK
     Route: 065
     Dates: start: 20191224
  8. DIOSMIN\HESPERIDIN [Concomitant]
     Active Substance: DIOSMIN\HESPERIDIN
     Indication: Varicose vein
     Dosage: UNK
     Route: 065
     Dates: start: 20200703
  9. TORSEMIDE [Concomitant]
     Active Substance: TORSEMIDE
     Indication: Arthritis
     Dosage: UNK
     Route: 065
     Dates: start: 20200709, end: 20200716
  10. TORSEMIDE [Concomitant]
     Active Substance: TORSEMIDE
     Dosage: UNK
     Route: 065
     Dates: start: 20200716
  11. FLUCONAZOLE [Concomitant]
     Active Substance: FLUCONAZOLE
     Indication: Stomatitis
     Dosage: UNK
     Route: 065
     Dates: start: 20191225
  12. FOLIC ACID [Concomitant]
     Active Substance: FOLIC ACID
     Indication: General physical condition
     Dosage: UNK
     Route: 065
     Dates: start: 20191214
  13. LOPERAMIDE [Concomitant]
     Active Substance: LOPERAMIDE
     Indication: Diarrhoea
     Dosage: UNK
     Route: 065
     Dates: start: 20191225
  14. OMEPRAZOLE [Concomitant]
     Active Substance: OMEPRAZOLE
     Indication: Prophylaxis
     Dosage: UNK
     Route: 065
     Dates: start: 201909
  15. ONDANSETRON [Concomitant]
     Active Substance: ONDANSETRON
     Indication: Chemotherapy side effect prophylaxis
     Dosage: UNK
     Route: 065
     Dates: start: 20191216
  16. CHLOROPYRAMINE HYDROCHLORIDE [Concomitant]
     Active Substance: CHLOROPYRAMINE HYDROCHLORIDE
     Indication: Pruritus
     Dosage: UNK
     Route: 065
     Dates: start: 20191222
  17. Taufon [Concomitant]
     Indication: Lacrimal disorder
     Dosage: UNK
     Route: 065
     Dates: start: 20200521
  18. Taufon [Concomitant]
     Route: 065
     Dates: start: 20200521

REACTIONS (1)
  - Hypersensitivity [Recovered/Resolved]

NARRATIVE: CASE EVENT DATE: 20200729
